FAERS Safety Report 18804706 (Version 3)
Quarter: 2022Q1

REPORT INFORMATION
  Report Type: Spontaneous
  Country: US (occurrence: US)
  Receive Date: 20210129
  Receipt Date: 20220223
  Transmission Date: 20220423
  Serious: No
  Sender: FDA-Public Use
  Company Number: US-UCBSA-2020049377

PATIENT
  Age: 66 Year
  Sex: Male

DRUGS (9)
  1. LACOSAMIDE [Suspect]
     Active Substance: LACOSAMIDE
     Indication: Opsoclonus myoclonus
     Dosage: UNKNOWN DOSE
  2. LACOSAMIDE [Suspect]
     Active Substance: LACOSAMIDE
     Indication: Off label use
  3. LEVETIRACETAM [Suspect]
     Active Substance: LEVETIRACETAM
     Indication: Opsoclonus myoclonus
  4. LEVETIRACETAM [Suspect]
     Active Substance: LEVETIRACETAM
     Indication: Off label use
  5. RITUXIMAB [Concomitant]
     Active Substance: RITUXIMAB
     Indication: Opsoclonus myoclonus
  6. BACLOFEN [Concomitant]
     Active Substance: BACLOFEN
     Indication: Opsoclonus myoclonus
  7. DIAZEPAM [Concomitant]
     Active Substance: DIAZEPAM
     Indication: Opsoclonus myoclonus
  8. VALPROATE SODIUM [Concomitant]
     Active Substance: VALPROATE SODIUM
     Indication: Opsoclonus myoclonus
  9. PHENYTOIN [Concomitant]
     Active Substance: PHENYTOIN
     Indication: Opsoclonus myoclonus

REACTIONS (2)
  - Drug ineffective for unapproved indication [Unknown]
  - Off label use [Unknown]
